FAERS Safety Report 18251827 (Version 1)
Quarter: 2020Q3

REPORT INFORMATION
  Report Type: Spontaneous
  Country: US (occurrence: US)
  Receive Date: 20200501
  Receipt Date: 20200501
  Transmission Date: 20201103
  Serious: Yes (Other)
  Sender: FDA-Public Use
  Company Number: None

PATIENT
  Age: 6 Decade
  Sex: Female

DRUGS (5)
  1. SHUANGHUANGLIAN 20ML [Suspect]
     Active Substance: HERBALS
     Route: 048
  2. ARBIDOL [Suspect]
     Active Substance: UMIFENOVIR
     Indication: COVID-19
     Route: 048
     Dates: start: 2020
  3. IMMUNOGLOBULINS, INTRAVENOUS 5G [Suspect]
     Active Substance: HUMAN IMMUNOGLOBULIN G
     Dosage: ?          OTHER ROUTE:IV?
  4. DEXAMETHASONE 5MG [Suspect]
     Active Substance: DEXAMETHASONE
     Dosage: ?          OTHER FREQUENCY:1?2X/DAY;?
  5. MOXIFLOXACIN. [Suspect]
     Active Substance: MOXIFLOXACIN
     Route: 048

REACTIONS (9)
  - Lung consolidation [None]
  - Dyspnoea [None]
  - Diarrhoea [None]
  - Fatigue [None]
  - Vomiting [None]
  - Malaise [None]
  - Feeling cold [None]
  - Pyrexia [None]
  - Pneumonia [None]
